FAERS Safety Report 21133762 (Version 1)
Quarter: 2022Q3

REPORT INFORMATION
  Report Type: Spontaneous
  Country: CN (occurrence: CN)
  Receive Date: 20220726
  Receipt Date: 20220726
  Transmission Date: 20221026
  Serious: Yes (Other)
  Sender: FDA-Public Use
  Company Number: CN-ORGANON-O2207CHN001910

PATIENT
  Age: 86 Year
  Sex: Male

DRUGS (2)
  1. SINGULAIR [Suspect]
     Active Substance: MONTELUKAST SODIUM
     Indication: Chronic obstructive pulmonary disease
     Dosage: 10 MG, QD
     Route: 048
     Dates: start: 20220712, end: 20220713
  2. SINGULAIR [Suspect]
     Active Substance: MONTELUKAST SODIUM
     Indication: Lower respiratory tract infection

REACTIONS (2)
  - Delirium [Recovered/Resolved]
  - Halo vision [Recovered/Resolved]

NARRATIVE: CASE EVENT DATE: 20220713
